FAERS Safety Report 7024043-7 (Version None)
Quarter: 2010Q4

REPORT INFORMATION
  Report Type: 
  Country: None (occurrence: None)
  Receive Date: 20101001
  Receipt Date: 20100922
  Transmission Date: 20110411
  Serious: Yes (Hospitalization)
  Sender: FDA-Public Use
  Company Number: DE-WYE-G04651309

PATIENT
  Sex: Female
  Weight: 65 kg

DRUGS (7)
  1. TREVILOR RETARD [Suspect]
     Indication: POSTPARTUM DEPRESSION
     Route: 048
     Dates: start: 20090101, end: 20090601
  2. TREVILOR RETARD [Suspect]
     Indication: ANXIETY
     Route: 048
     Dates: start: 20090601, end: 20091001
  3. TREVILOR RETARD [Suspect]
     Indication: PANIC DISORDER
     Route: 048
     Dates: start: 20100413, end: 20100419
  4. TREVILOR RETARD [Suspect]
     Route: 048
     Dates: start: 20100420, end: 20100601
  5. TREVILOR RETARD [Suspect]
     Route: 048
     Dates: start: 20100601, end: 20100601
  6. TREVILOR RETARD [Suspect]
     Route: 048
     Dates: start: 20100101
  7. TREVILOR RETARD [Suspect]
     Route: 048
     Dates: start: 20091001, end: 20100201

REACTIONS (9)
  - DEPRESSED LEVEL OF CONSCIOUSNESS [None]
  - DRUG EXPOSURE DURING PREGNANCY [None]
  - DRUG INTOLERANCE [None]
  - DRUG WITHDRAWAL SYNDROME [None]
  - LEUKOCYTURIA [None]
  - PYELONEPHRITIS [None]
  - RENAL IMPAIRMENT [None]
  - VERTIGO [None]
  - VOMITING [None]
